FAERS Safety Report 6250918-2 (Version None)
Quarter: 2009Q2

REPORT INFORMATION
  Report Type: 
  Country: None (occurrence: None)
  Receive Date: 20090630
  Receipt Date: 20090123
  Transmission Date: 20091009
  Serious: No
  Sender: FDA-Public Use
  Company Number: US-ABBOTT-09P-163-0499532-00

PATIENT
  Sex: Female
  Weight: 49.94 kg

DRUGS (10)
  1. ZEMPLAR [Suspect]
     Indication: RENAL FAILURE
     Route: 048
     Dates: start: 20081201
  2. REMICADE [Concomitant]
     Indication: CROHN'S DISEASE
  3. CALCIUM [Concomitant]
     Indication: DRUG USE FOR UNKNOWN INDICATION
  4. IMODIUM [Concomitant]
     Indication: DIARRHOEA
  5. M.V.I. [Concomitant]
     Indication: DRUG USE FOR UNKNOWN INDICATION
  6. ZINC [Concomitant]
     Indication: DRUG USE FOR UNKNOWN INDICATION
     Route: 048
  7. FERROUS SULFATE TAB [Concomitant]
     Indication: DRUG USE FOR UNKNOWN INDICATION
     Route: 048
  8. FOLIC ACID [Concomitant]
     Indication: DRUG USE FOR UNKNOWN INDICATION
     Route: 048
  9. FISH OIL [Concomitant]
     Indication: DRUG USE FOR UNKNOWN INDICATION
     Route: 048
  10. IV FLUIDS [Concomitant]
     Indication: DEHYDRATION
     Dosage: 1 BAG
     Route: 042

REACTIONS (1)
  - ABDOMINAL PAIN [None]
